FAERS Safety Report 21345752 (Version 1)
Quarter: 2022Q3

REPORT INFORMATION
  Report Type: Report from Study
  Country: DE (occurrence: DE)
  Receive Date: 20220916
  Receipt Date: 20220916
  Transmission Date: 20221027
  Serious: Yes (Hospitalization, Other)
  Sender: FDA-Public Use
  Company Number: None

PATIENT
  Sex: Female

DRUGS (16)
  1. METHOTREXATE [Suspect]
     Active Substance: METHOTREXATE
     Indication: Rheumatoid arthritis
     Dosage: 10 MG, UNIT DOSE :  10MG, THERAPY END DATE : ASKU
     Route: 065
     Dates: start: 20180326
  2. METHOTREXATE [Suspect]
     Active Substance: METHOTREXATE
     Dosage: 15 MG , UNIT DOSE :  15MG, THERAPY END DATE : ASKU
     Route: 065
     Dates: start: 20140806
  3. METHOTREXATE [Suspect]
     Active Substance: METHOTREXATE
     Dosage: 15 MG, UNIT DOSE :  15MG, THERAPY END DATE : ASKU
     Route: 065
     Dates: start: 20150811
  4. METHOTREXATE [Suspect]
     Active Substance: METHOTREXATE
     Dosage: 15 MG, UNIT DOSE :  15MG, THERAPY END DATE : ASKU
     Route: 065
     Dates: start: 20140702
  5. METHOTREXATE [Suspect]
     Active Substance: METHOTREXATE
     Dosage: 10 MG, UNIT DOSE :  10MG, THERAPY END DATE : ASKU
     Route: 065
     Dates: start: 20210329
  6. METHOTREXATE [Suspect]
     Active Substance: METHOTREXATE
     Dosage: 10 MG, UNIT DOSE :  10 MG, THERAPY END DATE : ASKU
     Route: 065
     Dates: start: 20181017
  7. METHOTREXATE [Suspect]
     Active Substance: METHOTREXATE
     Dosage: 10 MG, UNIT DOSE :  10 MG, THERAPY END DATE : ASKU
     Route: 065
     Dates: start: 20170905
  8. METHOTREXATE [Suspect]
     Active Substance: METHOTREXATE
     Dosage: 10 MG, UNIT DOSE :  10 MG, THERAPY END DATE : ASKU
     Route: 065
     Dates: start: 20200302
  9. METHOTREXATE [Suspect]
     Active Substance: METHOTREXATE
     Dosage: 10 MG, UNIT DOSE :  10 MG, THERAPY END DATE : ASKU
     Route: 065
     Dates: start: 20220311
  10. METHOTREXATE [Suspect]
     Active Substance: METHOTREXATE
     Dosage: 10 MG, UNIT DOSE :  10 MG, THERAPY END DATE : ASKU
     Route: 065
     Dates: start: 20190704
  11. METHOTREXATE [Suspect]
     Active Substance: METHOTREXATE
     Dosage: 15 MG, UNIT DOSE :  15MG, THERAPY END DATE : ASKU
     Route: 065
     Dates: start: 20150318
  12. METHOTREXATE [Suspect]
     Active Substance: METHOTREXATE
     Dosage: 15 MILLIGRAM, UNIT DOSE :  15MG, THERAPY END DATE : ASKU
     Route: 065
     Dates: start: 20141106
  13. SULFASALAZINE [Suspect]
     Active Substance: SULFASALAZINE
     Indication: Rheumatoid arthritis
     Dosage: 2000 MG, UNIT DOSE : 200MG, THERAPY END DATE : ASKU
     Route: 065
     Dates: start: 20130312
  14. SULFASALAZINE [Suspect]
     Active Substance: SULFASALAZINE
     Dosage: 2000 MG , UNIT DOSE : 200MG, THERAPY END DATE : ASKU
     Route: 065
     Dates: start: 20141106
  15. SULFASALAZINE [Suspect]
     Active Substance: SULFASALAZINE
     Dosage: 2000 MG, UNIT DOSE : 200MG, THERAPY END DATE : ASKU
     Route: 065
     Dates: start: 20131112
  16. SULFASALAZINE [Suspect]
     Active Substance: SULFASALAZINE
     Dosage: 2000 MG, UNIT DOSE : 200MG, THERAPY END DATE : ASKU
     Route: 065
     Dates: start: 20140702

REACTIONS (3)
  - Epilepsy [Recovered/Resolved]
  - COVID-19 [Recovered/Resolved]
  - Nausea [Unknown]

NARRATIVE: CASE EVENT DATE: 20170515
